FAERS Safety Report 6883208-5 (Version None)
Quarter: 2010Q3

REPORT INFORMATION
  Report Type: 
  Country: None (occurrence: None)
  Receive Date: 20100727
  Receipt Date: 20080128
  Transmission Date: 20110219
  Serious: Yes (Other)
  Sender: FDA-Public Use
  Company Number: US-PFIZER INC-2005138645

PATIENT
  Sex: Female

DRUGS (34)
  1. CELEBREX [Suspect]
     Indication: ROTATOR CUFF SYNDROME
     Dates: start: 19990205
  2. VIOXX [Suspect]
     Route: 048
     Dates: start: 20000109, end: 20040801
  3. FLONASE [Concomitant]
     Dates: start: 20040715
  4. LEVBID [Concomitant]
     Dates: start: 20030219
  5. DARVOCET-N 100 [Concomitant]
  6. PRAVACHOL [Concomitant]
  7. ULTRAM [Concomitant]
  8. CLIMARA [Concomitant]
  9. HUMULIN 70/30 [Concomitant]
  10. SYNTHROID [Concomitant]
  11. VASOTEC [Concomitant]
  12. ALLEGRA [Concomitant]
  13. ORLISTAT [Concomitant]
  14. AVANDIA [Concomitant]
  15. ACIPHEX [Concomitant]
  16. ZOCOR [Concomitant]
     Dates: start: 20010220
  17. BETAMETHASONE DIPROPIONATE [Concomitant]
     Dates: start: 20010220
  18. ATARAX [Concomitant]
     Dates: start: 20010220
  19. PROZAC [Concomitant]
     Dates: start: 20010220
  20. PROZAC [Concomitant]
     Dates: start: 20010628
  21. LORTAB [Concomitant]
     Dates: start: 20011022
  22. MOTRIN [Concomitant]
     Dates: start: 20011220
  23. LEVAQUIN [Concomitant]
     Dates: start: 20011220
  24. SKELAXIN [Concomitant]
     Dates: start: 20011220
  25. PLAVIX [Concomitant]
     Dates: start: 20020321
  26. LOPRESSOR [Concomitant]
     Dates: start: 20020503
  27. NEXIUM [Concomitant]
     Dates: start: 20020503
  28. ALL OTHER THERAPEUTIC PRODUCTS [Concomitant]
     Dates: start: 20020508
  29. TRICOR [Concomitant]
     Dates: start: 20020508
  30. ZANAFLEX [Concomitant]
     Dates: start: 20020918
  31. TOPROL-XL [Concomitant]
     Dates: start: 20021203
  32. NITROLINGUAL [Concomitant]
     Dates: start: 20030114
  33. MERIDIA [Concomitant]
     Dates: start: 20030725
  34. ACETYLSALICYLIC ACID SRT [Concomitant]
     Dates: start: 20040717

REACTIONS (1)
  - CORONARY ARTERY DISEASE [None]
